FAERS Safety Report 8076084-9 (Version None)
Quarter: 2012Q1

REPORT INFORMATION
  Report Type: 
  Country: None (occurrence: None)
  Receive Date: 20120127
  Receipt Date: 20110804
  Transmission Date: 20120608
  Serious: No
  Sender: FDA-Public Use
  Company Number: US-GLAXOSMITHKLINE-A0940948A

PATIENT
  Age: 37 Year
  Sex: Female

DRUGS (1)
  1. WELLBUTRIN XL [Suspect]
     Dosage: 300MGD PER DAY
     Route: 048
     Dates: start: 20110701

REACTIONS (1)
  - TREMOR [None]
